FAERS Safety Report 14693816 (Version 1)
Quarter: 2018Q1

REPORT INFORMATION
  Report Type: Report from Study
  Country: JP (occurrence: JP)
  Receive Date: 20180329
  Receipt Date: 20180329
  Transmission Date: 20180509
  Serious: Yes (Death, Life-Threatening, Hospitalization, Disabling, Other)
  Sender: FDA-Public Use
  Company Number: PHJP2018JP007366

PATIENT
  Age: 73 Year
  Sex: Female

DRUGS (2)
  1. MEKINIST [Suspect]
     Active Substance: TRAMETINIB DIMETHYL SULFOXIDE
     Indication: MALIGNANT MELANOMA STAGE IV
     Dosage: 2 MG, UNK
     Route: 048
     Dates: start: 20161029, end: 20170203
  2. TAFINLAR [Suspect]
     Active Substance: DABRAFENIB MESYLATE
     Indication: MALIGNANT MELANOMA STAGE IV
     Dosage: 300 MG, UNK
     Route: 048
     Dates: start: 20161029, end: 20170203

REACTIONS (3)
  - Malignant melanoma stage IV [Fatal]
  - Malignant neoplasm progression [Fatal]
  - Uveitis [Unknown]

NARRATIVE: CASE EVENT DATE: 20170203
